FAERS Safety Report 19317587 (Version 1)
Quarter: 2021Q2

REPORT INFORMATION
  Report Type: Spontaneous
  Country: US (occurrence: US)
  Receive Date: 20210527
  Receipt Date: 20210527
  Transmission Date: 20210717
  Serious: Yes (Hospitalization)
  Sender: FDA-Public Use
  Company Number: US-KINDEVA DRUG DELIVERY L.P.-2112042

PATIENT
  Sex: Male
  Weight: 131.82 kg

DRUGS (13)
  1. TOPICAL CORTICOSTEROIDS [Suspect]
     Active Substance: UNSPECIFIED INGREDIENT
     Route: 061
  2. QWS [Suspect]
     Active Substance: UNSPECIFIED INGREDIENT
  3. DUOBRII [Suspect]
     Active Substance: HALOBETASOL PROPIONATE\TAZAROTENE
     Route: 061
  4. LISINOPRIL. [Suspect]
     Active Substance: LISINOPRIL
     Dates: start: 20210330
  5. ANTIHYPERTENSIVE MEDICATION [Suspect]
     Active Substance: UNSPECIFIED INGREDIENT
  6. LABETALOL [Suspect]
     Active Substance: LABETALOL\LABETALOL HYDROCHLORIDE
     Dates: start: 20210330
  7. ALBUTEROL SULFATE. [Suspect]
     Active Substance: ALBUTEROL SULFATE
     Route: 048
  8. FLUTICASONE. [Suspect]
     Active Substance: FLUTICASONE
  9. OTEZLA [Suspect]
     Active Substance: APREMILAST
     Dates: start: 20190529
  10. IBUPROFEN. [Suspect]
     Active Substance: IBUPROFEN
  11. NORCO [Suspect]
     Active Substance: ACETAMINOPHEN\HYDROCODONE BITARTRATE
     Dates: start: 20210330
  12. DOXYCYCLINE. [Suspect]
     Active Substance: DOXYCYCLINE
  13. HYDROCHLOROTHIAZIDE. [Suspect]
     Active Substance: HYDROCHLOROTHIAZIDE
     Dates: start: 20210330

REACTIONS (1)
  - Loss of consciousness [Recovered/Resolved]

NARRATIVE: CASE EVENT DATE: 20210330
